FAERS Safety Report 5367581-5 (Version None)
Quarter: 2007Q2

REPORT INFORMATION
  Report Type: 
  Country: None (occurrence: None)
  Receive Date: 20070622
  Receipt Date: 20061206
  Transmission Date: 20071010
  Serious: No
  Sender: FDA-Public Use
  Company Number: US-ASTRAZENECA-2006UW27144

PATIENT
  Sex: Female
  Weight: 68 kg

DRUGS (8)
  1. PULMICORT [Suspect]
     Indication: ASTHMA
     Dosage: 1 PUFF BID
     Route: 055
  2. PULMICORT [Suspect]
     Dosage: 1 PUFF BID
     Route: 055
  3. FLOMAX [Concomitant]
  4. LISINOPRIL [Concomitant]
  5. HYDROXYUREA [Concomitant]
  6. DILTIAZEM [Concomitant]
  7. ALBUTEROL [Concomitant]
  8. NIACIN [Concomitant]

REACTIONS (2)
  - DIZZINESS [None]
  - MUSCULAR WEAKNESS [None]
